FAERS Safety Report 9465628 (Version 1)
Quarter: 2013Q3

REPORT INFORMATION
  Report Type: Spontaneous
  Country: KR (occurrence: KR)
  Receive Date: 20130820
  Receipt Date: 20130820
  Transmission Date: 20140515
  Serious: Yes (Other)
  Sender: FDA-Public Use
  Company Number: PHHY2013KR088502

PATIENT
  Age: 67 Year
  Sex: Male

DRUGS (6)
  1. IMATINIB [Suspect]
     Indication: GASTROINTESTINAL STROMAL TUMOUR
     Dosage: 400 MG PER DAY
  2. IMATINIB [Suspect]
     Dosage: 400 MG PER DAY
  3. IMATINIB [Suspect]
     Dosage: 300 MG PER DAY
  4. IMATINIB [Suspect]
     Dosage: 200 MG PER DAY
  5. IMATINIB [Suspect]
     Dosage: 300 MG PER DAY
  6. SUNITINIB [Suspect]
     Dosage: UNK UKN, UNK

REACTIONS (10)
  - Gastrointestinal stromal tumour [Unknown]
  - Malignant neoplasm progression [Unknown]
  - Ascites [Recovering/Resolving]
  - Oedema [Recovering/Resolving]
  - Pleural effusion [Recovering/Resolving]
  - Drug level increased [Recovering/Resolving]
  - Vomiting [Unknown]
  - Fluid retention [Recovering/Resolving]
  - Dyspnoea [Recovering/Resolving]
  - Oedema peripheral [Unknown]
